FAERS Safety Report 16281253 (Version 2)
Quarter: 2019Q2

REPORT INFORMATION
  Report Type: Report from Study
  Country: None (occurrence: US)
  Receive Date: 20190507
  Receipt Date: 20190514
  Transmission Date: 20190711
  Serious: Yes (Hospitalization)
  Sender: FDA-Public Use
  Company Number: US-ABBVIE-19K-163-2768139-00

PATIENT
  Age: 38 Year
  Sex: Female
  Weight: 104.42 kg

DRUGS (1)
  1. HUMIRA [Suspect]
     Active Substance: ADALIMUMAB
     Indication: HIDRADENITIS
     Route: 058
     Dates: start: 20180223

REACTIONS (7)
  - Fluid retention [Recovered/Resolved]
  - Pulmonary embolism [Recovering/Resolving]
  - Dyspnoea [Unknown]
  - Blood pressure increased [Recovered/Resolved]
  - Peripheral swelling [Recovered/Resolved]
  - Deep vein thrombosis [Recovering/Resolving]
  - Hidradenitis [Recovered/Resolved]

NARRATIVE: CASE EVENT DATE: 201904
